FAERS Safety Report 22057214 (Version 1)
Quarter: 2023Q1

REPORT INFORMATION
  Report Type: Spontaneous
  Country: FR (occurrence: FR)
  Receive Date: 20230303
  Receipt Date: 20230303
  Transmission Date: 20230418
  Serious: Yes (Hospitalization, Other)
  Sender: FDA-Public Use
  Company Number: FR-BRISTOL-MYERS SQUIBB COMPANY-2023-018910

PATIENT
  Age: 38 Year
  Sex: Male
  Weight: 73 kg

DRUGS (8)
  1. LANSOPRAZOLE [Suspect]
     Active Substance: LANSOPRAZOLE
     Indication: Acute myeloid leukaemia
     Dosage: UNK
     Route: 065
     Dates: start: 20221217
  2. POSACONAZOLE [Suspect]
     Active Substance: POSACONAZOLE
     Indication: Acute myeloid leukaemia
     Dosage: UNK
     Route: 065
     Dates: start: 20221215
  3. VALACYCLOVIR HYDROCHLORIDE [Suspect]
     Active Substance: VALACYCLOVIR HYDROCHLORIDE
     Indication: Acute myeloid leukaemia
     Dosage: UNK
     Route: 065
     Dates: start: 20221209
  4. VESANOID [Suspect]
     Active Substance: TRETINOIN
     Indication: Acute myeloid leukaemia
     Dosage: UNK
     Route: 048
     Dates: start: 20230105, end: 20230108
  5. VESANOID [Suspect]
     Active Substance: TRETINOIN
     Dosage: 40 MILLIGRAM
     Route: 048
     Dates: start: 20221209, end: 20221230
  6. TRISENOX [Suspect]
     Active Substance: ARSENIC TRIOXIDE
     Indication: Acute myeloid leukaemia
     Dosage: 18.4 MILLIGRAM (22 MG/DAY FOR 5 DAYS THEN 18.4 MG TWICE/WEEK)
     Route: 042
     Dates: start: 20221213, end: 20221230
  7. DEXAMETHASONE [Suspect]
     Active Substance: DEXAMETHASONE
     Indication: Acute myeloid leukaemia
     Dosage: UNK
     Route: 065
     Dates: start: 20221219
  8. HYDREA [Suspect]
     Active Substance: HYDROXYUREA
     Indication: Hyperleukocytosis
     Dosage: UNK
     Route: 048
     Dates: start: 20221220, end: 20221228

REACTIONS (9)
  - Septic embolus [Unknown]
  - Staphylococcal infection [Unknown]
  - Extremity necrosis [Recovered/Resolved]
  - Vasculitis [Unknown]
  - Jugular vein thrombosis [Recovered/Resolved]
  - Endocarditis [Unknown]
  - Hyperleukocytosis [Unknown]
  - Tongue ulceration [Unknown]
  - Weight increased [Unknown]

NARRATIVE: CASE EVENT DATE: 20221201
